FAERS Safety Report 11439217 (Version 1)
Quarter: 2015Q3

REPORT INFORMATION
  Report Type: Spontaneous
  Country: US (occurrence: US)
  Receive Date: 20150901
  Receipt Date: 20150901
  Transmission Date: 20151125
  Serious: Yes (Other)
  Sender: FDA-Public Use
  Company Number: US-ROCHE-1010930

PATIENT
  Sex: Female

DRUGS (2)
  1. RIBASPHERE RIBAPAK [Suspect]
     Active Substance: RIBAVIRIN
     Indication: CHRONIC HEPATITIS C
     Route: 065
     Dates: start: 20110829
  2. PEGASYS [Suspect]
     Active Substance: PEGINTERFERON ALFA-2A
     Indication: CHRONIC HEPATITIS C
     Route: 065
     Dates: start: 20110829

REACTIONS (9)
  - Panic attack [Unknown]
  - Splenomegaly [Unknown]
  - Irritability [Unknown]
  - Feeling cold [Unknown]
  - Epistaxis [Unknown]
  - Anaemia [Unknown]
  - Red blood cell morphology abnormal [Unknown]
  - Crying [Unknown]
  - Platelet count decreased [Unknown]
